FAERS Safety Report 25481393 (Version 1)
Quarter: 2025Q2

REPORT INFORMATION
  Report Type: Spontaneous
  Country: US (occurrence: US)
  Receive Date: 20250626
  Receipt Date: 20250626
  Transmission Date: 20250716
  Serious: No
  Sender: UROGEN PHARMA
  Company Number: US-UROGEN PHARMA LTD -2025-UGN-000079

PATIENT

DRUGS (4)
  1. JELMYTO [Suspect]
     Active Substance: MITOMYCIN
     Indication: Transitional cell cancer of the renal pelvis and ureter
     Dates: start: 20250408, end: 20250408
  2. JELMYTO [Suspect]
     Active Substance: MITOMYCIN
     Dates: start: 20250415, end: 20250415
  3. JELMYTO [Suspect]
     Active Substance: MITOMYCIN
     Dates: start: 20250422, end: 20250422
  4. JELMYTO [Suspect]
     Active Substance: MITOMYCIN
     Dates: start: 20250429, end: 20250429

REACTIONS (5)
  - Headache [Unknown]
  - Eye swelling [Unknown]
  - Rash [Unknown]
  - Nausea [Unknown]
  - Asthenia [Unknown]

NARRATIVE: CASE EVENT DATE: 20250502
